FAERS Safety Report 14678734 (Version 1)
Quarter: 2018Q1

REPORT INFORMATION
  Report Type: Spontaneous
  Country: ES (occurrence: ES)
  Receive Date: 20180326
  Receipt Date: 20180326
  Transmission Date: 20180509
  Serious: Yes (Other)
  Sender: FDA-Public Use
  Company Number: ES-AUROBINDO-AUR-APL-2018-015834

PATIENT
  Age: 71 Year
  Sex: Male

DRUGS (1)
  1. CIPROFLOXACIN. [Suspect]
     Active Substance: CIPROFLOXACIN
     Indication: CHOLELITHIASIS
     Dosage: CADA 12 HORAS
     Route: 042
     Dates: start: 20180301, end: 20180303

REACTIONS (4)
  - Nausea [Recovered/Resolved]
  - Chest discomfort [Recovered/Resolved]
  - Flushing [Recovered/Resolved]
  - Choking sensation [Recovered/Resolved]

NARRATIVE: CASE EVENT DATE: 20180303
